FAERS Safety Report 6643671-1 (Version None)
Quarter: 2010Q1

REPORT INFORMATION
  Report Type: 
  Country: None (occurrence: None)
  Receive Date: 20100321
  Receipt Date: 20100308
  Transmission Date: 20100710
  Serious: Yes (Hospitalization)
  Sender: FDA-Public Use
  Company Number: DE-BRISTOL-MYERS SQUIBB COMPANY-15007768

PATIENT
  Age: 46 Year
  Sex: Male

DRUGS (4)
  1. CISPLATIN [Suspect]
     Indication: SEMINOMA
     Dosage: DAILY ON THE FIRST 5 DAYS.
  2. VEPESID [Suspect]
     Indication: SEMINOMA
     Dosage: GIVEN DAILY ON THE FIRST 5 DAYS.
  3. BLEOMYCIN SULFATE [Suspect]
     Indication: SEMINOMA
     Dosage: ON DAYS 1, 8 AND 15.
  4. DEXAMETHASONE [Concomitant]

REACTIONS (2)
  - EPILEPSY [None]
  - ISCHAEMIC STROKE [None]
